FAERS Safety Report 5275663-1 (Version None)
Quarter: 2007Q1

REPORT INFORMATION
  Report Type: 
  Country: None (occurrence: None)
  Receive Date: 20070326
  Receipt Date: 20070315
  Transmission Date: 20070707
  Serious: Yes (Other)
  Sender: FDA-Public Use
  Company Number: 2007AP01133

PATIENT
  Age: 89 Year
  Sex: Female

DRUGS (2)
  1. MEROPEN [Suspect]
     Indication: SEPSIS
     Route: 041
  2. VENOGLOBULIN [Concomitant]
     Route: 042

REACTIONS (1)
  - HEPATIC FUNCTION ABNORMAL [None]
